FAERS Safety Report 23883289 (Version 1)
Quarter: 2024Q2

REPORT INFORMATION
  Report Type: Spontaneous
  Country: US (occurrence: US)
  Receive Date: 20240522
  Receipt Date: 20240522
  Transmission Date: 20240716
  Serious: Yes (Other)
  Sender: FDA-Public Use
  Company Number: US-LUOXIN-LUX-2024-US-LIT-00016

PATIENT
  Age: 72 Year
  Sex: Male

DRUGS (5)
  1. TOBRAMYCIN [Suspect]
     Active Substance: TOBRAMYCIN\TOBRAMYCIN SULFATE
     Indication: Pseudomonas infection
     Route: 061
  2. VANCOMYCIN [Suspect]
     Active Substance: VANCOMYCIN
     Indication: Pseudomonas infection
     Route: 061
  3. POLYMYXIN B\TRIMETHOPRIM SULFATE [Suspect]
     Active Substance: POLYMYXIN B\TRIMETHOPRIM SULFATE
     Indication: Pseudomonas infection
     Route: 061
  4. CILASTATIN SODIUM\IMIPENEM [Suspect]
     Active Substance: CILASTATIN SODIUM\IMIPENEM
     Indication: Pseudomonas infection
  5. CARBOXYMETHYLCELLULOSE [Concomitant]
     Active Substance: CARBOXYMETHYLCELLULOSE
     Indication: Dry eye

REACTIONS (1)
  - Drug ineffective [Unknown]
